FAERS Safety Report 15853602 (Version 3)
Quarter: 2019Q1

REPORT INFORMATION
  Report Type: Spontaneous
  Country: IT (occurrence: IT)
  Receive Date: 20190122
  Receipt Date: 20190228
  Transmission Date: 20190417
  Serious: Yes (Other)
  Sender: FDA-Public Use
  Company Number: IT-PFIZER INC-2019028585

PATIENT
  Age: 41 Year
  Sex: Male

DRUGS (5)
  1. RAMIPRIL. [Suspect]
     Active Substance: RAMIPRIL
     Indication: HYPERTENSION
     Dosage: 14 DF, TOTAL
     Route: 048
     Dates: start: 20180409, end: 20180409
  2. DOXAZOSIN MESILATE [Suspect]
     Active Substance: DOXAZOSIN MESYLATE
     Indication: HYPERTENSION
     Dosage: 20 DF, TOTAL
     Route: 048
     Dates: start: 20180409, end: 20180409
  3. INVEGA [Concomitant]
     Active Substance: PALIPERIDONE
     Dosage: UNK
     Route: 048
  4. AMLODIPINE BESILATE [Suspect]
     Active Substance: AMLODIPINE BESYLATE
     Indication: HYPERTENSION
     Dosage: 14 DF, TOTAL
     Route: 048
     Dates: start: 20180409, end: 20180409
  5. FLUNOX [Suspect]
     Active Substance: FLURAZEPAM HYDROCHLORIDE
     Indication: INSOMNIA
     Dosage: 20 DF, TOTAL
     Route: 048
     Dates: start: 20180409, end: 20180409

REACTIONS (3)
  - Cold sweat [Unknown]
  - Hypotension [Unknown]
  - Drug abuse [Unknown]

NARRATIVE: CASE EVENT DATE: 20180409
